FAERS Safety Report 13059736 (Version 1)
Quarter: 2016Q4

REPORT INFORMATION
  Report Type: Spontaneous
  Country: CH (occurrence: CH)
  Receive Date: 20161223
  Receipt Date: 20161223
  Transmission Date: 20170207
  Serious: Yes (Other)
  Sender: FDA-Public Use
  Company Number: CH-PFIZER INC-2016578939

PATIENT
  Age: 26 Year
  Sex: Female

DRUGS (3)
  1. ESCITALOPRAM [Suspect]
     Active Substance: ESCITALOPRAM OXALATE
     Dosage: 10 MG, 1X/DAY
     Route: 048
     Dates: start: 20160531
  2. ESCITALOPRAM [Suspect]
     Active Substance: ESCITALOPRAM OXALATE
     Dosage: 5 MG, DAILY
  3. TEMESTA [Suspect]
     Active Substance: LORAZEPAM
     Dosage: 1 MG, AS NEEDED
     Route: 048
     Dates: start: 201606

REACTIONS (4)
  - Malaise [Unknown]
  - Headache [Unknown]
  - Withdrawal syndrome [Unknown]
  - Palpitations [Unknown]

NARRATIVE: CASE EVENT DATE: 20160919
